FAERS Safety Report 7602006-8 (Version None)
Quarter: 2011Q3

REPORT INFORMATION
  Report Type: 
  Country: None (occurrence: None)
  Receive Date: 20110711
  Receipt Date: 20110328
  Transmission Date: 20111222
  Serious: No
  Sender: FDA-Public Use
  Company Number: US-BAUSCH-2011BL001698

PATIENT
  Age: 10 Year
  Sex: Male

DRUGS (5)
  1. CONCERTA [Concomitant]
     Route: 048
  2. CLONIDINE [Concomitant]
  3. ZIRGAN [Suspect]
     Indication: HERPES SIMPLEX OPHTHALMIC
     Route: 047
     Dates: start: 20110118, end: 20110126
  4. ZIRGAN [Suspect]
     Route: 047
     Dates: start: 20110127, end: 20110208
  5. ZOLOFT [Concomitant]
     Route: 048

REACTIONS (1)
  - DACRYOSTENOSIS ACQUIRED [None]
